FAERS Safety Report 8868711 (Version 2)
Quarter: 2012Q4

REPORT INFORMATION
  Report Type: 
  Country: US (occurrence: US)
  Receive Date: 20121024
  Receipt Date: 20121205
  Transmission Date: 20130627
  Serious: Yes (Death)
  Sender: FDA-Public Use
  Company Number: US-ELI_LILLY_AND_COMPANY-US201105004708

PATIENT
  Age: 87 None
  Sex: Male
  Weight: 79.82 kg

DRUGS (1)
  1. FORTEO [Suspect]
     Dosage: 20 ug, qd
     Route: 058
     Dates: start: 20110419

REACTIONS (2)
  - Death [Fatal]
  - Diarrhoea [Unknown]
